FAERS Safety Report 18570619 (Version 2)
Quarter: 2021Q1

REPORT INFORMATION
  Report Type: Spontaneous
  Country: US (occurrence: US)
  Receive Date: 20201202
  Receipt Date: 20210218
  Transmission Date: 20210419
  Serious: No
  Sender: FDA-Public Use
  Company Number: US-TAKEDA-2020TUS052430

PATIENT
  Age: 21 Year
  Sex: Male
  Weight: 105.22 kg

DRUGS (21)
  1. NEXIUM I.V. [Concomitant]
     Active Substance: ESOMEPRAZOLE SODIUM
  2. EPINEPHRINE. [Concomitant]
     Active Substance: EPINEPHRINE
  3. COMPAZINE [Concomitant]
     Active Substance: PROCHLORPERAZINE MALEATE
  4. ZOFRAN [Concomitant]
     Active Substance: ONDANSETRON HYDROCHLORIDE
  5. VITAMIN D2 [Concomitant]
     Active Substance: ERGOCALCIFEROL
  6. LEVBID [Concomitant]
     Active Substance: HYOSCYAMINE SULFATE
  7. REGLAN [Concomitant]
     Active Substance: METOCLOPRAMIDE HYDROCHLORIDE
  8. CLOBETASOL [Concomitant]
     Active Substance: CLOBETASOL
  9. KETOCONAZOLE. [Concomitant]
     Active Substance: KETOCONAZOLE
  10. ACETAMINOPHEN. [Concomitant]
     Active Substance: ACETAMINOPHEN
  11. LIDOCAINE AND PRILOCAINE [Concomitant]
     Active Substance: LIDOCAINE\PRILOCAINE
  12. HEPARIN [Concomitant]
     Active Substance: HEPARIN SODIUM
  13. GABAPENTIN. [Concomitant]
     Active Substance: GABAPENTIN
  14. GAMMAGARD LIQUID [Suspect]
     Active Substance: HUMAN IMMUNOGLOBULIN G
     Indication: HYPOGAMMAGLOBULINAEMIA
     Dosage: 30 GRAM, Q4WEEKS
     Route: 042
     Dates: start: 20140524
  15. DIPHENHYDRAMINE. [Concomitant]
     Active Substance: DIPHENHYDRAMINE
  16. CICLOPIROX. [Concomitant]
     Active Substance: CICLOPIROX
  17. AMITRIPTYLINE [Concomitant]
     Active Substance: AMITRIPTYLINE
  18. SODIUM CHLORIDE. [Concomitant]
     Active Substance: SODIUM CHLORIDE
  19. METOCLOPRAMIDE. [Concomitant]
     Active Substance: METOCLOPRAMIDE
  20. HYDROCORTISONE. [Concomitant]
     Active Substance: HYDROCORTISONE
  21. DICLOFENAC [Concomitant]
     Active Substance: DICLOFENAC

REACTIONS (2)
  - Migraine [Unknown]
  - Sinusitis [Unknown]

NARRATIVE: CASE EVENT DATE: 20210201
